FAERS Safety Report 25800636 (Version 4)
Quarter: 2025Q3

REPORT INFORMATION
  Report Type: Spontaneous
  Country: JP (occurrence: JP)
  Receive Date: 20250915
  Receipt Date: 20250925
  Transmission Date: 20251021
  Serious: Yes (Hospitalization, Other)
  Sender: BRISTOL-MYERS SQUIBB COMPANY
  Company Number: JP-ONO-2025JP016300

PATIENT
  Age: 46 Year
  Sex: Male

DRUGS (3)
  1. YERVOY [Suspect]
     Active Substance: IPILIMUMAB
     Indication: Metastatic renal cell carcinoma
  2. OPDIVO [Suspect]
     Active Substance: NIVOLUMAB
     Indication: Metastatic renal cell carcinoma
  3. OPDIVO [Suspect]
     Active Substance: NIVOLUMAB

REACTIONS (3)
  - Immune-mediated cholangitis [Unknown]
  - Immune-mediated hypothyroidism [Unknown]
  - Secondary adrenocortical insufficiency [Unknown]
